FAERS Safety Report 7489502-1 (Version None)
Quarter: 2011Q2

REPORT INFORMATION
  Report Type: 
  Country: None (occurrence: None)
  Receive Date: 20110518
  Receipt Date: 20110510
  Transmission Date: 20111010
  Serious: Yes (Other)
  Sender: FDA-Public Use
  Company Number: US-AMGEN-USASP2011024287

PATIENT
  Age: 60 Year
  Sex: Female

DRUGS (1)
  1. ENBREL [Suspect]
     Indication: SPONDYLITIS
     Dosage: 50 MG, QWK
     Dates: start: 20040415, end: 20110418

REACTIONS (10)
  - SPINAL OSTEOARTHRITIS [None]
  - ASTHENIA [None]
  - SPONDYLITIS [None]
  - OSTEOPOROSIS [None]
  - MOBILITY DECREASED [None]
  - TOOTH ABSCESS [None]
  - GRIP STRENGTH DECREASED [None]
  - PAIN [None]
  - WALKING AID USER [None]
  - ABASIA [None]
